FAERS Safety Report 22023319 (Version 4)
Quarter: 2023Q1

REPORT INFORMATION
  Report Type: Other
  Country: US (occurrence: None)
  Receive Date: 20230223
  Receipt Date: 20230322
  Transmission Date: 20230417
  Serious: Yes (Death)
  Sender: FDA-Public Use
  Company Number: US-ROCHE-3290950

PATIENT
  Age: 90 Year
  Sex: Male

DRUGS (1)
  1. ERIVEDGE [Suspect]
     Active Substance: VISMODEGIB
     Indication: Basal cell carcinoma
     Dosage: 1 CAPSULE BY MOUTH EVERY DAY MONDAY THROUGH FRIDAY (WEEKENDS OFF)
     Route: 048

REACTIONS (1)
  - Renal failure [Fatal]
